FAERS Safety Report 20379739 (Version 1)
Quarter: 2022Q1

REPORT INFORMATION
  Report Type: Spontaneous
  Country: FR (occurrence: FR)
  Receive Date: 20220126
  Receipt Date: 20220126
  Transmission Date: 20220423
  Serious: Yes (Hospitalization)
  Sender: FDA-Public Use
  Company Number: None

PATIENT
  Age: 61 Year
  Sex: Male

DRUGS (2)
  1. KEYTRUDA [Suspect]
     Active Substance: PEMBROLIZUMAB
     Indication: Bronchial carcinoma
     Dosage: 5 CYCLES
     Route: 042
     Dates: start: 20210827
  2. ALIMTA [Suspect]
     Active Substance: PEMETREXED DISODIUM
     Indication: Bronchial carcinoma
     Dosage: 5 CYCLES
     Route: 042
     Dates: start: 20210827

REACTIONS (1)
  - Pseudocellulitis [Not Recovered/Not Resolved]

NARRATIVE: CASE EVENT DATE: 20211201
